FAERS Safety Report 18119837 (Version 4)
Quarter: 2021Q2

REPORT INFORMATION
  Report Type: Report from Study
  Country: DE (occurrence: DE)
  Receive Date: 20200806
  Receipt Date: 20210604
  Transmission Date: 20210717
  Serious: Yes (Life-Threatening, Hospitalization)
  Sender: FDA-Public Use
  Company Number: DE-SEATTLE GENETICS-2020SGN03488

PATIENT

DRUGS (19)
  1. BRENTUXIMAB VEDOTIN?MPI [Suspect]
     Active Substance: BRENTUXIMAB VEDOTIN
     Indication: HODGKIN^S DISEASE
     Dosage: 180 MILLIGRAM/KILOGRAM
     Route: 065
     Dates: start: 20200723
  2. CYCLOPHOSPHAMIDE. [Suspect]
     Active Substance: CYCLOPHOSPHAMIDE
     Indication: HODGKIN^S DISEASE
     Dosage: 2800 MILLIGRAM/SQ. METER
     Route: 065
     Dates: start: 20200724
  3. DOXORUBICIN [DOXORUBICIN HYDROCHLORIDE] [Suspect]
     Active Substance: DOXORUBICIN HYDROCHLORIDE
     Indication: HODGKIN^S DISEASE
     Dosage: 90 MILLIGRAM/SQ. METER
     Route: 065
     Dates: start: 20200724
  4. CYCLOPHOSPHAMIDE. [Suspect]
     Active Substance: CYCLOPHOSPHAMIDE
     Dosage: 650 MILLIGRAM/SQ. METER
     Route: 065
     Dates: start: 20201013
  5. DACARBAZINE. [Suspect]
     Active Substance: DACARBAZINE
     Indication: HODGKIN^S DISEASE
     Dosage: 900 MILLIGRAM/SQ. METER
     Route: 065
     Dates: start: 20200725
  6. ETOPOSIDE. [Suspect]
     Active Substance: ETOPOSIDE
     Indication: HODGKIN^S DISEASE
     Dosage: 90 MILLIGRAM/SQ. METER
     Route: 065
     Dates: start: 20200724
  7. ETOPOSIDE. [Suspect]
     Active Substance: ETOPOSIDE
     Dosage: 150 MILLIGRAM/SQ. METER
     Route: 065
     Dates: start: 20200821
  8. BRENTUXIMAB VEDOTIN?MPI [Suspect]
     Active Substance: BRENTUXIMAB VEDOTIN
     Dosage: 180 MILLIGRAM/KILOGRAM
     Route: 065
     Dates: start: 20200820
  9. DOXORUBICIN [DOXORUBICIN HYDROCHLORIDE] [Suspect]
     Active Substance: DOXORUBICIN HYDROCHLORIDE
     Dosage: 35 MILLIGRAM/SQ. METER
     Route: 065
     Dates: start: 20201013
  10. CYCLOPHOSPHAMIDE. [Suspect]
     Active Substance: CYCLOPHOSPHAMIDE
     Dosage: 1100 MILLIGRAM/SQ. METER
     Route: 065
     Dates: start: 20200821
  11. DACARBAZINE. [Suspect]
     Active Substance: DACARBAZINE
     Dosage: 200 MILLIGRAM/SQ. METER
     Route: 065
     Dates: start: 20200822
  12. DOXORUBICIN [DOXORUBICIN HYDROCHLORIDE] [Suspect]
     Active Substance: DOXORUBICIN HYDROCHLORIDE
     Dosage: 40 MILLIGRAM/SQ. METER
     Route: 065
     Dates: start: 20200821
  13. DEXAMETHASONE. [Suspect]
     Active Substance: DEXAMETHASONE
     Dosage: UNK
     Route: 065
     Dates: start: 20200821
  14. DACARBAZINE. [Suspect]
     Active Substance: DACARBAZINE
     Dosage: 250 MILLIGRAM/SQ. METER
     Route: 065
     Dates: start: 20201014
  15. DEXAMETHASONE. [Suspect]
     Active Substance: DEXAMETHASONE
     Indication: HODGKIN^S DISEASE
     Dosage: 160 MILLIGRAM/SQ. METER
     Route: 065
     Dates: start: 20200724
  16. DEXAMETHASONE. [Suspect]
     Active Substance: DEXAMETHASONE
     Dosage: 40 MILLIGRAM
     Route: 065
     Dates: start: 20201013
  17. CIPROFLOXACIN. [Concomitant]
     Active Substance: CIPROFLOXACIN
     Dosage: 300 MILLIGRAM
     Route: 065
     Dates: start: 20200729, end: 20200802
  18. BRENTUXIMAB VEDOTIN?MPI [Suspect]
     Active Substance: BRENTUXIMAB VEDOTIN
     Dosage: 18 MILLIGRAM/KILOGRAM
     Route: 065
     Dates: start: 20201012
  19. ETOPOSIDE. [Suspect]
     Active Substance: ETOPOSIDE
     Dosage: 100 MILLIGRAM/SQ. METER
     Route: 065
     Dates: start: 20201013

REACTIONS (8)
  - Stomatitis [Recovered/Resolved]
  - Pancytopenia [Not Recovered/Not Resolved]
  - Pyrexia [Not Recovered/Not Resolved]
  - Mucosal inflammation [Not Recovered/Not Resolved]
  - Diarrhoea [Not Recovered/Not Resolved]
  - Febrile neutropenia [Recovered/Resolved]
  - Anaemia [Recovered/Resolved]
  - Thrombocytopenia [Recovered/Resolved]

NARRATIVE: CASE EVENT DATE: 20200803
